FAERS Safety Report 6274696-6 (Version None)
Quarter: 2009Q3

REPORT INFORMATION
  Report Type: 
  Country: None (occurrence: None)
  Receive Date: 20090721
  Receipt Date: 20070913
  Transmission Date: 20100115
  Serious: Yes (Hospitalization, Other)
  Sender: FDA-Public Use
  Company Number: US-ASTRAZENECA-2007UW16426

PATIENT
  Age: 42 Year
  Sex: Female
  Weight: 129.3 kg

DRUGS (44)
  1. SEROQUEL [Suspect]
     Indication: SCHIZOAFFECTIVE DISORDER
     Dosage: 100MG-300MG
     Route: 048
     Dates: start: 20020101
  2. SEROQUEL [Suspect]
     Dosage: TOTAL DAILY DOSE 500 MG
     Route: 048
     Dates: start: 20040101
  3. HALDOL [Concomitant]
     Dates: start: 20040101
  4. ATIVAN [Concomitant]
     Dates: start: 20060101
  5. NORVASC [Concomitant]
     Dosage: 2.5 MG - 10 MG
     Route: 048
  6. LISINOPRIL [Concomitant]
     Dosage: 2.5 MG - 40 MG
     Route: 048
  7. ZOCOR [Concomitant]
     Route: 048
  8. AVANDIA [Concomitant]
     Dosage: 4 MG- 8 MG
     Route: 048
  9. GLUCOPHAGE [Concomitant]
     Route: 065
  10. PREVACID [Concomitant]
     Route: 048
  11. PREMARIN [Concomitant]
     Dosage: 0.3 MG - 0.625 MG
     Route: 048
  12. CELEBREX [Concomitant]
     Route: 065
  13. FLOVENT [Concomitant]
     Dosage: 110 MCG TWO PUFFS TWICE A DAY
     Route: 055
  14. ALLOPURINOL [Concomitant]
     Route: 065
  15. ASPIRIN [Concomitant]
     Dosage: 81 MG - 325 MG
     Route: 048
  16. ZYPREXA [Concomitant]
     Route: 048
  17. NAPROXEN [Concomitant]
     Route: 048
  18. PAXIL [Concomitant]
     Dosage: 20 MG - 40 MG
     Route: 048
  19. SALSALATE [Concomitant]
     Route: 048
  20. COGENTIN [Concomitant]
     Dosage: 1 MG EVERY 8 HOURS
     Route: 048
  21. ALBUTEROL [Concomitant]
     Dosage: 90 MCG 2 PUFFS QID
     Route: 048
  22. COUMADIN [Concomitant]
     Route: 065
  23. GLIPIZIDE [Concomitant]
     Dosage: 2.5 MG - 5 MG
     Route: 048
  24. VASOTEC [Concomitant]
     Route: 065
  25. ROBITUSSIN [Concomitant]
     Route: 048
  26. INSULIN HUMAN RECOMBINANT [Concomitant]
     Route: 065
  27. LOPRESSOR [Concomitant]
     Dosage: 25 MG - 50 MG
     Route: 048
  28. COZAAR [Concomitant]
     Dosage: 25 MG - 50 MG
     Route: 048
  29. MYLANTA [Concomitant]
     Route: 048
  30. ZELNORM [Concomitant]
     Route: 048
  31. GABAPENTIN [Concomitant]
     Route: 048
  32. IBUPROFEN [Concomitant]
     Dosage: 600 MG - 800 MG
     Route: 048
  33. TRAMADOL HCL [Concomitant]
     Route: 065
  34. TRAZODONE [Concomitant]
     Route: 065
  35. METHYLPREDNISOLONE [Concomitant]
     Route: 065
  36. DIPHENHYDRAMINE HCL [Concomitant]
     Route: 065
  37. PHENAZOPYRIDINE HCL TAB [Concomitant]
     Route: 048
  38. PENICILLIN [Concomitant]
     Route: 065
  39. ACTOS [Concomitant]
     Route: 065
  40. ENULOSE [Concomitant]
     Dosage: 10 GM/15 ML
     Route: 065
  41. PLAVIX [Concomitant]
     Route: 048
  42. COMBIVENT [Concomitant]
     Dosage: 14.7 GM 2 PUFFS QID
     Route: 048
  43. WELLBUTRIN SR [Concomitant]
     Route: 048
  44. METHOCARBAMOL [Concomitant]
     Route: 048

REACTIONS (4)
  - DIABETES MELLITUS [None]
  - DIABETIC NEPHROPATHY [None]
  - DIABETIC RETINOPATHY [None]
  - TYPE 2 DIABETES MELLITUS [None]
